FAERS Safety Report 4523849-3 (Version None)
Quarter: 2004Q4

REPORT INFORMATION
  Report Type: 
  Country: None (occurrence: None)
  Receive Date: 20041029
  Receipt Date: 20040929
  Transmission Date: 20050328
  Serious: No
  Sender: FDA-Public Use
  Company Number: 200417413US

PATIENT
  Age: 43 Year
  Sex: Female

DRUGS (1)
  1. KETEK [Suspect]

REACTIONS (2)
  - DRY SKIN [None]
  - SKIN WARM [None]
